FAERS Safety Report 6239313-X (Version None)
Quarter: 2009Q2

REPORT INFORMATION
  Report Type: 
  Country: None (occurrence: None)
  Receive Date: 20090622
  Receipt Date: 20090610
  Transmission Date: 20091009
  Serious: Yes (Hospitalization, Other)
  Sender: FDA-Public Use
  Company Number: PHEH2009US06002

PATIENT
  Age: 74 Year
  Sex: Male

DRUGS (2)
  1. EXELON [Suspect]
     Dosage: 9.5 MG, QD
     Route: 062
     Dates: end: 20090605
  2. EXELON [Suspect]
     Dosage: 4.6 MG, QD
     Route: 062

REACTIONS (4)
  - DEHYDRATION [None]
  - MALAISE [None]
  - MENTAL IMPAIRMENT [None]
  - SKELETAL INJURY [None]
